FAERS Safety Report 12312823 (Version 1)
Quarter: 2016Q2

REPORT INFORMATION
  Report Type: Report from Study
  Country: DE (occurrence: DE)
  Receive Date: 20160428
  Receipt Date: 20160428
  Transmission Date: 20160815
  Serious: Yes (Hospitalization)
  Sender: FDA-Public Use
  Company Number: DE-ABBVIE-16K-062-1612574-00

PATIENT
  Age: 56 Year
  Sex: Female

DRUGS (6)
  1. TEVANATE [Concomitant]
     Active Substance: ALENDRONIC ACID
     Indication: PRODUCT USED FOR UNKNOWN INDICATION
  2. VITAMIN D3 [Concomitant]
     Active Substance: CHOLECALCIFEROL
     Indication: PRODUCT USED FOR UNKNOWN INDICATION
  3. EXFORGE [Concomitant]
     Active Substance: AMLODIPINE BESYLATE\VALSARTAN
     Indication: PRODUCT USED FOR UNKNOWN INDICATION
     Dosage: 5/160MG
  4. HUMIRA [Suspect]
     Active Substance: ADALIMUMAB
     Indication: ANKYLOSING SPONDYLITIS
     Route: 058
     Dates: start: 201411
  5. METHOTREXATE [Concomitant]
     Active Substance: METHOTREXATE
     Indication: PRODUCT USED FOR UNKNOWN INDICATION
  6. TREVILOR RETARD [Concomitant]
     Active Substance: VENLAFAXINE HYDROCHLORIDE
     Indication: PRODUCT USED FOR UNKNOWN INDICATION

REACTIONS (2)
  - Intestinal haemorrhage [Recovered/Resolved with Sequelae]
  - Gastrointestinal inflammation [Recovered/Resolved]

NARRATIVE: CASE EVENT DATE: 20160303
